APPROVED DRUG PRODUCT: CHLORTHALIDONE
Active Ingredient: CHLORTHALIDONE
Strength: 25MG
Dosage Form/Route: TABLET;ORAL
Application: A207222 | Product #001 | TE Code: AB
Applicant: UMEDICA LABORATORIES PRIVATE LTD
Approved: May 24, 2018 | RLD: No | RS: No | Type: RX